FAERS Safety Report 8156777-5 (Version None)
Quarter: 2012Q1

REPORT INFORMATION
  Report Type: 
  Country: None (occurrence: None)
  Receive Date: 20120222
  Receipt Date: 20120208
  Transmission Date: 20120608
  Serious: Yes (Other)
  Sender: FDA-Public Use
  Company Number: AU-CELGENEUS-008-50794-12020813

PATIENT

DRUGS (2)
  1. WARFARIN SODIUM [Concomitant]
     Route: 065
  2. VIDAZA [Suspect]
     Indication: MYELODYSPLASTIC SYNDROME
     Dosage: 75 MILLIGRAM/SQ. METER
     Route: 050

REACTIONS (1)
  - INTERNATIONAL NORMALISED RATIO INCREASED [None]
